FAERS Safety Report 25212217 (Version 3)
Quarter: 2025Q2

REPORT INFORMATION
  Report Type: Spontaneous
  Country: MY (occurrence: MY)
  Receive Date: 20250418
  Receipt Date: 20250501
  Transmission Date: 20250716
  Serious: Yes (Death)
  Sender: ALEXION PHARMACEUTICALS
  Company Number: MY-AstraZeneca-CH-00851508A

PATIENT
  Age: 68 Year
  Weight: 50 kg

DRUGS (2)
  1. FASLODEX [Suspect]
     Active Substance: FULVESTRANT
     Indication: Breast cancer metastatic
     Dosage: 250 MILLIGRAM, BID
  2. FASLODEX [Suspect]
     Active Substance: FULVESTRANT

REACTIONS (1)
  - Pneumonia [Fatal]
